FAERS Safety Report 5492004-5 (Version None)
Quarter: 2007Q4

REPORT INFORMATION
  Report Type: 
  Country: None (occurrence: None)
  Receive Date: 20071022
  Receipt Date: 20071012
  Transmission Date: 20080405
  Serious: Yes (Other)
  Sender: FDA-Public Use
  Company Number: B0490835A

PATIENT
  Age: 30 Year
  Sex: Male

DRUGS (2)
  1. BECLOMETHASONE DIPROPIONATE [Suspect]
     Indication: ASTHMA
     Dosage: 250MCG UNKNOWN
     Route: 055
  2. SALMETEROL XINAFOATE [Suspect]
     Indication: ASTHMA
     Dosage: 25MCG UNKNOWN
     Route: 055

REACTIONS (1)
  - ASTHMA [None]
